FAERS Safety Report 10272844 (Version 1)
Quarter: 2014Q2

REPORT INFORMATION
  Report Type: Spontaneous
  Country: US (occurrence: None)
  Receive Date: 20140630
  Receipt Date: 20140630
  Transmission Date: 20141212
  Serious: No
  Sender: FDA-Public Use
  Company Number: None

PATIENT
  Age: 31 Year
  Sex: Female
  Weight: 71.22 kg

DRUGS (2)
  1. DULOXETINE [Suspect]
     Indication: ANXIETY
     Route: 048
     Dates: start: 20140501, end: 20140613
  2. LUPRON [Suspect]

REACTIONS (6)
  - Product substitution issue [None]
  - Middle insomnia [None]
  - Hyperhidrosis [None]
  - Palpitations [None]
  - Anxiety [None]
  - Panic reaction [None]
